FAERS Safety Report 9287654 (Version 2)
Quarter: 2013Q3

REPORT INFORMATION
  Report Type: Report from Study
  Country: BR (occurrence: BR)
  Receive Date: 20130514
  Receipt Date: 20130718
  Transmission Date: 20140515
  Serious: No
  Sender: FDA-Public Use
  Company Number: PHHY2013BR046297

PATIENT
  Age: 64 Year
  Sex: Male

DRUGS (12)
  1. FORASEQ [Suspect]
     Indication: ASTHMA
     Dosage: 1 DF, Q12H (ABOUT 40 YEARS AGO)
  2. LOTAR [Concomitant]
     Indication: HYPERTENSION
     Dosage: 1 DF, ORAL
     Route: 048
  3. ZYLORIC [Concomitant]
     Indication: BLOOD URIC ACID ABNORMAL
     Dosage: 1 DF, DAILY
     Route: 048
  4. OMEGA 3 [Concomitant]
     Indication: VITAMIN SUPPLEMENTATION
     Dosage: 1 DF, DAILY
     Route: 048
  5. FLUOXETINE [Concomitant]
     Indication: ANXIETY
     Dosage: 1 DF, DAILY (STARTED AFTER THYROID SURGERY)
     Route: 048
  6. SYNTHROID [Concomitant]
     Indication: THYROID DISORDER
     Dosage: 1 DF, DAILY (DTARTED AFTER THYROID SURGERY)
     Route: 048
  7. GLIFAGE [Concomitant]
     Indication: DIABETES MELLITUS
     Dosage: 1 DF, DAILY (STARTED 4 OR 5 YEARS AGO)
     Route: 048
  8. LIPITOR [Concomitant]
     Indication: BLOOD CHOLESTEROL
     Dosage: 1 DF, DAILY (STARTED 4 OR 5 YEARS AGO)
     Route: 048
  9. FENOFIBRATE [Concomitant]
     Indication: BLOOD TRIGLYCERIDES
     Dosage: 1 DF, DAILY (STARTED 4 YEARS AGO)
     Route: 048
  10. DAFLON                             /01026201/ [Concomitant]
     Indication: THROMBOSIS
     Dosage: 1 DF, DAILY (AFTER LEG SURGERY)
     Route: 048
  11. MILGAMMA [Concomitant]
     Indication: VITAMIN SUPPLEMENTATION
     Dosage: 1 DF,DAILY (STARTED ONE MONTH AGO)
     Route: 048
  12. MILGAMMA [Concomitant]
     Indication: PERIPHERAL CIRCULATORY FAILURE

REACTIONS (6)
  - Rhinitis [Not Recovered/Not Resolved]
  - Cough [Not Recovered/Not Resolved]
  - Dyspnoea [Not Recovered/Not Resolved]
  - Wheezing [Not Recovered/Not Resolved]
  - Drug ineffective [Unknown]
  - Incorrect dose administered [Unknown]
